FAERS Safety Report 25532248 (Version 1)
Quarter: 2025Q3

REPORT INFORMATION
  Report Type: Spontaneous
  Country: US (occurrence: US)
  Receive Date: 20250709
  Receipt Date: 20250709
  Transmission Date: 20251020
  Serious: Yes (Other)
  Sender: COOPERSURGICAL
  Company Number: US-COOPERSURGICAL, INC.-2025CPS005258

PATIENT
  Age: 36 Year
  Sex: Female
  Weight: 97.506 kg

DRUGS (1)
  1. PARAGARD T 380A [Suspect]
     Active Substance: COPPER
     Route: 015
     Dates: start: 20150413

REACTIONS (18)
  - Reproductive complication associated with device [Not Recovered/Not Resolved]
  - Staphylococcal infection [Recovered/Resolved]
  - Colectomy [Recovered/Resolved]
  - Device breakage [Recovered/Resolved]
  - Foreign body in urogenital tract [Recovered/Resolved]
  - Complication of device removal [Recovered/Resolved]
  - Embedded device [Recovered/Resolved]
  - Pregnancy with contraceptive device [Recovered/Resolved]
  - Drug ineffective [Unknown]
  - Abortion spontaneous [Recovered/Resolved]
  - Uterine perforation [Unknown]
  - Intrauterine gas [Not Recovered/Not Resolved]
  - Depression [Unknown]
  - Migraine [Recovered/Resolved]
  - Anxiety [Unknown]
  - Abdominal pain [Recovered/Resolved]
  - Device dislocation [Recovered/Resolved]
  - Abnormal uterine bleeding [Recovered/Resolved]

NARRATIVE: CASE EVENT DATE: 20210401
